FAERS Safety Report 8432388-9 (Version None)
Quarter: 2012Q2

REPORT INFORMATION
  Report Type: 
  Country: None (occurrence: None)
  Receive Date: 20120613
  Receipt Date: 20120530
  Transmission Date: 20120825
  Serious: No
  Sender: FDA-Public Use
  Company Number: US-ASTRAZENECA-2011SE41535

PATIENT
  Age: 48 Year
  Sex: Female
  Weight: 67.6 kg

DRUGS (30)
  1. CYCLOBENZAR [Concomitant]
  2. NEXIUM [Suspect]
     Route: 048
     Dates: start: 20011201, end: 20030701
  3. OMEGA-3-ACID ETHYL ESTERS [Concomitant]
  4. NIZATIDIZINE/AXID [Concomitant]
  5. PRILOSEC [Concomitant]
  6. COMPAZINE [Concomitant]
  7. CERALAFATE [Concomitant]
  8. SUDAFED 12 HOUR [Concomitant]
     Dates: start: 20060101
  9. POTASSIUM CHLORIDE/K DUR [Concomitant]
     Dates: start: 20020315
  10. NEXIUM [Suspect]
     Indication: GASTROOESOPHAGEAL REFLUX DISEASE
     Route: 048
  11. PEPCID [Concomitant]
     Dates: start: 20020516
  12. HYDROCLORAZAZIDE/HCTZ [Concomitant]
     Indication: BLOOD PRESSURE
  13. TOMARADOLE HCL [Concomitant]
  14. PROPO N/APAP/DARVOCET [Concomitant]
     Dates: start: 20060101
  15. NIFEDIPINE [Concomitant]
  16. NEXIUM [Suspect]
     Route: 048
     Dates: start: 20030101, end: 20110101
  17. HYDROCLORAZAZIDE/HCTZ [Concomitant]
     Dates: start: 20020516
  18. KADOR [Concomitant]
  19. PROPO N/APAP/DARVOCET [Concomitant]
     Dosage: 100-650
     Dates: start: 20020328
  20. ARTHROTEC [Concomitant]
     Dates: start: 20060101
  21. PROTONIX [Concomitant]
  22. PEPCID [Concomitant]
     Dates: start: 20060101
  23. CALCIUM CARBONATE [Concomitant]
     Indication: CALCIUM DEFICIENCY
  24. ZYRTEC [Concomitant]
     Indication: MULTIPLE ALLERGIES
  25. NEXIUM [Suspect]
     Route: 048
     Dates: start: 20020405
  26. VITAMIN D [Concomitant]
     Indication: VITAMIN D DEFICIENCY
  27. IMITREX [Concomitant]
     Indication: MIGRAINE
  28. IMITREX [Concomitant]
     Dates: start: 20060101
  29. ZOFREN [Concomitant]
  30. M.V.I. [Concomitant]
     Dates: start: 20060101

REACTIONS (6)
  - OSTEOPOROSIS [None]
  - MULTIPLE FRACTURES [None]
  - VITAMIN D DEFICIENCY [None]
  - CALCIUM DEFICIENCY [None]
  - INTERVERTEBRAL DISC DEGENERATION [None]
  - VOMITING [None]
